FAERS Safety Report 17917912 (Version 2)
Quarter: 2020Q3

REPORT INFORMATION
  Report Type: Spontaneous
  Country: US (occurrence: US)
  Receive Date: 20200619
  Receipt Date: 20200713
  Transmission Date: 20201103
  Serious: No
  Sender: FDA-Public Use
  Company Number: US-PFIZER INC-2020237852

PATIENT
  Age: 73 Year
  Sex: Female

DRUGS (2)
  1. PRAVASTATIN. [Suspect]
     Active Substance: PRAVASTATIN
     Dosage: UNK
  2. ATORVASTATIN CALCIUM. [Suspect]
     Active Substance: ATORVASTATIN CALCIUM
     Indication: BLOOD CHOLESTEROL ABNORMAL
     Dosage: 10 MG, 1X/DAY (ONE TABLET BY MOUTH ONCE DAILY)
     Route: 048

REACTIONS (3)
  - Myalgia [Unknown]
  - Arthralgia [Unknown]
  - Drug hypersensitivity [Unknown]
